FAERS Safety Report 7302432-0 (Version None)
Quarter: 2011Q1

REPORT INFORMATION
  Report Type: 
  Country: None (occurrence: None)
  Receive Date: 20110218
  Receipt Date: 20101020
  Transmission Date: 20110831
  Serious: No
  Sender: FDA-Public Use
  Company Number: US-ASTRAZENECA-2010SE49786

PATIENT
  Age: 85 Year
  Sex: Female

DRUGS (10)
  1. TEKTURNA [Concomitant]
  2. TIZANIDINE [Concomitant]
  3. FELODIPINE [Suspect]
     Indication: HYPERTENSION
     Route: 048
     Dates: start: 20100919
  4. METOPROLOL [Concomitant]
  5. ATIVAN [Concomitant]
  6. LOSARTAN POTASSIUM AND HYDROCHLOROTHIAZIDE [Concomitant]
  7. SIMVASTATIN [Concomitant]
  8. OMEPRAZOLE [Concomitant]
  9. ASA BABY [Concomitant]
  10. PREDNISONE [Concomitant]

REACTIONS (3)
  - TOOTHACHE [None]
  - GINGIVAL PAIN [None]
  - OEDEMA PERIPHERAL [None]
